FAERS Safety Report 5904100-6 (Version None)
Quarter: 2008Q3

REPORT INFORMATION
  Report Type: 
  Country: None (occurrence: None)
  Receive Date: 20080919
  Receipt Date: 20080708
  Transmission Date: 20090109
  Serious: No
  Sender: FDA-Public Use
  Company Number: US-WYE-H05007508

PATIENT
  Age: 75 Year
  Sex: Female

DRUGS (3)
  1. PRISTIQ [Suspect]
     Indication: MAJOR DEPRESSION
     Dosage: 50 MG 1X PER 1 DAY, ORAL
     Route: 048
  2. EVISTA (RALOXIOFENE HYDROCHLORIDE) [Concomitant]
  3. CADUET (AMLODIPNIE BESILATE/ATORAVASTATIN CALCIUM) [Concomitant]

REACTIONS (2)
  - CONDITION AGGRAVATED [None]
  - TINNITUS [None]
